FAERS Safety Report 5571189-6 (Version None)
Quarter: 2007Q4

REPORT INFORMATION
  Report Type: 
  Country: None (occurrence: None)
  Receive Date: 20071221
  Receipt Date: 20070222
  Transmission Date: 20080405
  Serious: No
  Sender: FDA-Public Use
  Company Number: A0634828A

PATIENT
  Age: 75 Year
  Sex: Female
  Weight: 65.9 kg

DRUGS (2)
  1. FLUTICASONE PROPIONATE [Suspect]
     Dosage: 2SPR PER DAY
     Route: 045
     Dates: start: 20061128, end: 20070101
  2. BLOOD PRESSURE MEDICATION [Concomitant]

REACTIONS (3)
  - COUGH [None]
  - LIP SWELLING [None]
  - THROAT IRRITATION [None]
